FAERS Safety Report 10037556 (Version 3)
Quarter: 2014Q2

REPORT INFORMATION
  Report Type: Spontaneous
  Country: RO (occurrence: RO)
  Receive Date: 20140326
  Receipt Date: 20140409
  Transmission Date: 20141212
  Serious: Yes (Hospitalization, Other)
  Sender: FDA-Public Use
  Company Number: RO-ASTELLAS-2014US002921

PATIENT
  Sex: Male

DRUGS (2)
  1. TARCEVA [Suspect]
     Indication: LUNG NEOPLASM MALIGNANT
     Dosage: 150 MG, UID/QD
     Route: 048
     Dates: start: 200807, end: 20140314
  2. TARCEVA [Suspect]
     Dosage: UNK
     Route: 065
     Dates: start: 20140403

REACTIONS (6)
  - Angle closure glaucoma [Recovering/Resolving]
  - Visual impairment [Recovering/Resolving]
  - Ocular hypertension [Recovering/Resolving]
  - Keratitis [Recovering/Resolving]
  - Pneumonia [Recovering/Resolving]
  - Conjunctivitis [Recovered/Resolved]
